FAERS Safety Report 19905673 (Version 1)
Quarter: 2021Q3

REPORT INFORMATION
  Report Type: Spontaneous
  Country: US (occurrence: US)
  Receive Date: 20210930
  Receipt Date: 20210930
  Transmission Date: 20211014
  Serious: No
  Sender: FDA-Public Use
  Company Number: None

PATIENT
  Age: 41 Year
  Sex: Female

DRUGS (1)
  1. COSENTYX [Suspect]
     Active Substance: SECUKINUMAB
     Indication: PSORIASIS
     Route: 058
     Dates: start: 202103

REACTIONS (9)
  - Vomiting [None]
  - Adverse drug reaction [None]
  - Secretion discharge [None]
  - Ear infection [None]
  - Oral herpes [None]
  - Upper respiratory tract infection [None]
  - Mucosal haemorrhage [None]
  - Diarrhoea [None]
  - Cough [None]

NARRATIVE: CASE EVENT DATE: 20210315
